FAERS Safety Report 7440715-4 (Version None)
Quarter: 2011Q2

REPORT INFORMATION
  Report Type: 
  Country: None (occurrence: None)
  Receive Date: 20110427
  Receipt Date: 20110419
  Transmission Date: 20111010
  Serious: Yes (Hospitalization, Other)
  Sender: FDA-Public Use
  Company Number: US-PURDUE-USA-2011-0067089

PATIENT
  Age: 75 Year
  Sex: Male

DRUGS (2)
  1. COUMADIN [Concomitant]
     Indication: PRODUCT USED FOR UNKNOWN INDICATION
     Dosage: 5 MCG/HR, DAILY
  2. BUTRANS [Suspect]
     Indication: BACK PAIN
     Dosage: 5 MCG/HR, DAILY

REACTIONS (5)
  - CONVULSION [None]
  - NERVOUS SYSTEM DISORDER [None]
  - VISUAL IMPAIRMENT [None]
  - CEREBROVASCULAR ACCIDENT [None]
  - UNRESPONSIVE TO STIMULI [None]
